FAERS Safety Report 4477254-9 (Version None)
Quarter: 2004Q4

REPORT INFORMATION
  Report Type: 
  Country: None (occurrence: None)
  Receive Date: 20041018
  Receipt Date: 20031219
  Transmission Date: 20050328
  Serious: Yes (Other)
  Sender: FDA-Public Use
  Company Number: US-GLAXOSMITHKLINE-A0443776A

PATIENT
  Age: 33 Year
  Sex: Female

DRUGS (1)
  1. CEFTIN [Suspect]
     Indication: SKIN INFECTION
     Dosage: 250MG TWICE PER DAY
     Route: 048
     Dates: start: 20031021, end: 20031031

REACTIONS (1)
  - ERYTHEMA MULTIFORME [None]
